FAERS Safety Report 14368946 (Version 1)
Quarter: 2018Q1

REPORT INFORMATION
  Report Type: Spontaneous
  Country: US (occurrence: US)
  Receive Date: 20180109
  Receipt Date: 20180109
  Transmission Date: 20180509
  Serious: No
  Sender: FDA-Public Use
  Company Number: US-DRREDDYS-USA/USA/17/0087875

PATIENT
  Age: 63 Year
  Sex: Female
  Weight: 72.12 kg

DRUGS (2)
  1. HABITROL [Suspect]
     Active Substance: NICOTINE
     Indication: SMOKING CESSATION THERAPY
     Route: 061
  2. HABITROL [Suspect]
     Active Substance: NICOTINE
     Route: 061
     Dates: start: 20170221

REACTIONS (8)
  - Acne [Recovered/Resolved]
  - Application site rash [Recovered/Resolved]
  - Application site pruritus [Recovered/Resolved]
  - Application site erythema [Recovered/Resolved]
  - Overdose [Unknown]
  - Product quality issue [Unknown]
  - Abnormal dreams [Recovered/Resolved]
  - Treatment noncompliance [Unknown]
